FAERS Safety Report 5488615-3 (Version None)
Quarter: 2007Q4

REPORT INFORMATION
  Report Type: 
  Country: None (occurrence: None)
  Receive Date: 20071001
  Receipt Date: 20061102
  Transmission Date: 20080405
  Serious: Yes (Other)
  Sender: FDA-Public Use
  Company Number: 200615649BWH

PATIENT
  Sex: Female

DRUGS (3)
  1. CIPRO IV [Suspect]
     Indication: DRUG USE FOR UNKNOWN INDICATION
     Dosage: INTRAVENOUS
     Route: 042
  2. CIPRO [Suspect]
     Indication: DRUG USE FOR UNKNOWN INDICATION
  3. VANCOMYCIN [Concomitant]

REACTIONS (2)
  - JAUNDICE [None]
  - LIVER DISORDER [None]
